FAERS Safety Report 20741516 (Version 1)
Quarter: 2022Q2

REPORT INFORMATION
  Report Type: Spontaneous
  Country: CA (occurrence: None)
  Receive Date: 20220422
  Receipt Date: 20220422
  Transmission Date: 20220721
  Serious: Yes (Life-Threatening, Hospitalization, Other)
  Sender: FDA-Public Use
  Company Number: CA-ROCHE-3073589

PATIENT
  Age: 69 Year
  Sex: Male

DRUGS (17)
  1. MYCOPHENOLATE MOFETIL [Suspect]
     Active Substance: MYCOPHENOLATE MOFETIL
     Indication: Myocarditis
     Route: 048
  2. MYCOPHENOLATE MOFETIL [Suspect]
     Active Substance: MYCOPHENOLATE MOFETIL
     Indication: Cardiogenic shock
  3. MYCOPHENOLATE MOFETIL [Suspect]
     Active Substance: MYCOPHENOLATE MOFETIL
     Indication: Immunosuppressant drug therapy
  4. MYCOPHENOLATE MOFETIL [Suspect]
     Active Substance: MYCOPHENOLATE MOFETIL
     Indication: Immune-mediated myocarditis
  5. METHYLPREDNISOLONE [Suspect]
     Active Substance: METHYLPREDNISOLONE
     Indication: Myocarditis
     Route: 042
  6. METHYLPREDNISOLONE [Suspect]
     Active Substance: METHYLPREDNISOLONE
     Indication: Immunosuppressant drug therapy
     Route: 042
  7. METHYLPREDNISOLONE [Suspect]
     Active Substance: METHYLPREDNISOLONE
     Route: 042
  8. METHYLPREDNISOLONE [Suspect]
     Active Substance: METHYLPREDNISOLONE
     Route: 042
  9. PEMBROLIZUMAB [Suspect]
     Active Substance: PEMBROLIZUMAB
     Indication: Prostate cancer metastatic
     Route: 042
  10. PREDNISONE [Suspect]
     Active Substance: PREDNISONE
     Indication: Prostate cancer metastatic
     Route: 065
  11. ZYTIGA [Suspect]
     Active Substance: ABIRATERONE ACETATE
     Indication: Prostate cancer metastatic
     Route: 048
  12. ZYTIGA [Suspect]
     Active Substance: ABIRATERONE ACETATE
     Route: 048
  13. AMIODARONE [Concomitant]
     Active Substance: AMIODARONE
     Indication: Ventricular tachycardia
     Route: 042
  14. ABIRATERONE ACETATE [Concomitant]
     Active Substance: ABIRATERONE ACETATE
     Indication: Metastases to bone
     Route: 065
  15. ABIRATERONE ACETATE [Concomitant]
     Active Substance: ABIRATERONE ACETATE
     Indication: Hormone-refractory prostate cancer
  16. PREDNISONE [Concomitant]
     Active Substance: PREDNISONE
     Indication: Metastases to bone
  17. PREDNISONE [Concomitant]
     Active Substance: PREDNISONE
     Indication: Hormone-refractory prostate cancer

REACTIONS (18)
  - Hepatitis [Unknown]
  - Accelerated idioventricular rhythm [Recovered/Resolved]
  - Anaemia [Recovered/Resolved]
  - Cardiogenic shock [Recovered/Resolved]
  - Cytomegalovirus viraemia [Recovered/Resolved]
  - Drug ineffective [Unknown]
  - Duodenal ulcer [Recovered/Resolved]
  - Gastric ulcer [Recovered/Resolved]
  - Gastritis [Recovered/Resolved]
  - Gastrointestinal erosion [Recovered/Resolved]
  - Gastrointestinal haemorrhage [Recovered/Resolved]
  - Immune-mediated hepatitis [Recovered/Resolved]
  - Immune-mediated myocarditis [Recovered/Resolved]
  - Immune-mediated myositis [Recovered/Resolved]
  - Oesophagitis [Recovered/Resolved]
  - Respiratory failure [Recovered/Resolved]
  - Somnolence [Recovered/Resolved]
  - Ventricular tachycardia [Recovered/Resolved]
